FAERS Safety Report 9938048 (Version 2)
Quarter: 2014Q1

REPORT INFORMATION
  Report Type: Spontaneous
  Country: US (occurrence: US)
  Receive Date: 20140303
  Receipt Date: 20140303
  Transmission Date: 20141002
  Serious: Yes (Other)
  Sender: FDA-Public Use
  Company Number: US-BEH-2013035412

PATIENT
  Age: 61 Year
  Sex: Male

DRUGS (1)
  1. HIZENTRA [Suspect]
     Indication: IMMUNODEFICIENCY COMMON VARIABLE

REACTIONS (3)
  - Psoriasis [Recovering/Resolving]
  - Condition aggravated [Recovering/Resolving]
  - Respiratory tract infection [Unknown]
